FAERS Safety Report 9978086 (Version 2)
Quarter: 2014Q1

REPORT INFORMATION
  Report Type: Spontaneous
  Country: US (occurrence: US)
  Receive Date: 20140306
  Receipt Date: 20140306
  Transmission Date: 20141002
  Serious: No
  Sender: FDA-Public Use
  Company Number: US-ABBVIE-13P-163-1064112-00

PATIENT
  Sex: Male
  Weight: 92.16 kg

DRUGS (3)
  1. HUMIRA [Suspect]
     Indication: COLITIS ULCERATIVE
     Route: 058
     Dates: start: 2012, end: 201204
  2. HUMIRA [Suspect]
     Indication: COLITIS ULCERATIVE
     Route: 058
     Dates: start: 201204
  3. PROTONIX [Concomitant]
     Indication: GASTROOESOPHAGEAL REFLUX DISEASE

REACTIONS (8)
  - Pain [Unknown]
  - Pain [Unknown]
  - Cough [Unknown]
  - Choking [Unknown]
  - Lacrimation increased [Unknown]
  - Herpes zoster [Unknown]
  - Neck pain [Unknown]
  - Headache [Unknown]
